FAERS Safety Report 6038060-7 (Version None)
Quarter: 2009Q1

REPORT INFORMATION
  Report Type: 
  Country: None (occurrence: None)
  Receive Date: 20090112
  Receipt Date: 20090112
  Transmission Date: 20090719
  Serious: Yes (Hospitalization)
  Sender: FDA-Public Use
  Company Number: None

PATIENT
  Age: 76 Year
  Sex: Male
  Weight: 92.7 kg

DRUGS (2)
  1. GLEEVEC [Suspect]
     Indication: SARCOMA METASTATIC
  2. TAXOL [Suspect]
     Indication: SARCOMA METASTATIC

REACTIONS (2)
  - DYSPNOEA [None]
  - PYREXIA [None]
